FAERS Safety Report 25644164 (Version 2)
Quarter: 2025Q3

REPORT INFORMATION
  Report Type: Spontaneous
  Country: EU (occurrence: EU)
  Receive Date: 20250805
  Receipt Date: 20250918
  Transmission Date: 20251021
  Serious: No
  Sender: PFIZER
  Company Number: EU-PFIZER INC-PV202500067588

PATIENT
  Age: 14 Year
  Sex: Male
  Weight: 50 kg

DRUGS (8)
  1. GENOTROPIN [Suspect]
     Active Substance: SOMATROPIN
     Indication: Growth hormone deficiency
     Route: 058
     Dates: start: 202409
  2. GENOTROPIN [Suspect]
     Active Substance: SOMATROPIN
     Route: 058
     Dates: start: 202409
  3. GENOTROPIN [Suspect]
     Active Substance: SOMATROPIN
     Route: 058
     Dates: start: 202409
  4. MEDITHYROX [Concomitant]
     Indication: Hypothyroidism
     Dosage: 100 MG, 1X/DAY
  5. ARIMIDEX [Concomitant]
     Active Substance: ANASTROZOLE
     Dosage: 1 MG, 1X/DAY
  6. OXANDROLONE [Concomitant]
     Active Substance: OXANDROLONE
     Dosage: 0.5 DF, 1X/DAY
  7. GLYCOFREN [Concomitant]
     Indication: Prophylaxis
     Dosage: 0.5 MG, 1X/DAY
  8. CALCIOFIX [Concomitant]
     Dosage: 600 MG, 1X/DAY

REACTIONS (2)
  - Device information output issue [Unknown]
  - Device connection issue [Unknown]
